FAERS Safety Report 24793442 (Version 1)
Quarter: 2024Q4

REPORT INFORMATION
  Report Type: Spontaneous
  Country: US (occurrence: None)
  Receive Date: 20241230
  Receipt Date: 20241230
  Transmission Date: 20250114
  Serious: Yes (Life-Threatening, Other)
  Sender: Public
  Company Number: None

PATIENT
  Age: 64 Year
  Sex: Female
  Weight: 55.8 kg

DRUGS (4)
  1. ACTEMRA [Suspect]
     Active Substance: TOCILIZUMAB
     Indication: Giant cell arteritis
     Dosage: OTHER FREQUENCY : ONCE WEEKLY;?
     Route: 058
     Dates: start: 20241205
  2. ACTEMRA [Suspect]
     Active Substance: TOCILIZUMAB
     Indication: Polymyalgia rheumatica
  3. METHOTREXATE [Suspect]
     Active Substance: METHOTREXATE
     Dates: start: 20241205
  4. PREDNISONE TABLETS, USP, 10 MG [Suspect]
     Active Substance: PREDNISONE
     Dates: start: 20240801

REACTIONS (5)
  - Mouth ulceration [None]
  - Hypophagia [None]
  - Abdominal pain upper [None]
  - Haematochezia [None]
  - Blood pressure increased [None]

NARRATIVE: CASE EVENT DATE: 20241230
